FAERS Safety Report 9442283 (Version 1)
Quarter: 2013Q3

REPORT INFORMATION
  Report Type: Spontaneous
  Country: US (occurrence: US)
  Receive Date: 20130806
  Receipt Date: 20130806
  Transmission Date: 20140515
  Serious: Yes (Hospitalization, Other)
  Sender: FDA-Public Use
  Company Number: US-ASTRAZENECA-2013SE58186

PATIENT
  Age: 57 Year
  Sex: Male
  Weight: 103.4 kg

DRUGS (9)
  1. NEXIUM [Suspect]
     Indication: GASTROOESOPHAGEAL REFLUX DISEASE
     Route: 048
     Dates: start: 2004, end: 2009
  2. NEXIUM [Suspect]
     Indication: GASTROOESOPHAGEAL REFLUX DISEASE
     Route: 048
     Dates: start: 2010
  3. LISINOPRIL [Suspect]
     Indication: HYPERTENSION
     Route: 048
     Dates: start: 2011
  4. CRESTOR [Suspect]
     Indication: BLOOD CHOLESTEROL ABNORMAL
     Route: 048
     Dates: start: 2004
  5. LASIX [Concomitant]
     Indication: HYPERTENSION
     Route: 048
     Dates: start: 2011
  6. CARBEDILOL [Concomitant]
     Indication: DRUG THERAPY
     Route: 048
     Dates: start: 2011
  7. EFIENT [Concomitant]
     Indication: ANTICOAGULANT THERAPY
     Route: 048
     Dates: start: 2011
  8. POTASSIUM CHLORIDE [Concomitant]
     Indication: ELECTROLYTE SUBSTITUTION THERAPY
     Route: 048
     Dates: start: 2011
  9. PLAVIX [Concomitant]
     Dates: end: 2011

REACTIONS (5)
  - Rotator cuff syndrome [Unknown]
  - Cardiac aneurysm [Recovered/Resolved]
  - Myocardial infarction [Recovered/Resolved]
  - Adverse event [Recovered/Resolved]
  - Drug dose omission [Unknown]
